FAERS Safety Report 7704045-5 (Version None)
Quarter: 2011Q3

REPORT INFORMATION
  Report Type: 
  Country: None (occurrence: None)
  Receive Date: 20110729
  Receipt Date: 20101011
  Transmission Date: 20111222
  Serious: Yes (Other)
  Sender: FDA-Public Use
  Company Number: US-JNJFOC-20101003282

PATIENT
  Age: 60 Year
  Sex: Male
  Weight: 81.6475 kg

DRUGS (3)
  1. MULTIVITAMIN [Concomitant]
  2. EFFEXOR (VENLAXINE) [Concomitant]
  3. IMODIUM MULTI-SYMPTOM RELIEF [Suspect]
     Indication: DIARRHOEA
     Dosage: 2 DOSE(S), IN 1 DAY, ORAL
     Route: 048

REACTIONS (1)
  - CONTRAINDICATION TO MEDICAL TREATMENT [None]
